FAERS Safety Report 5076420-1 (Version None)
Quarter: 2006Q3

REPORT INFORMATION
  Report Type: 
  Country: None (occurrence: None)
  Receive Date: 20060807
  Receipt Date: 20060801
  Transmission Date: 20061208
  Serious: Yes (Life-Threatening, Other)
  Sender: FDA-Public Use
  Company Number: 2006-07-1271

PATIENT
  Age: 49 Year
  Sex: Male
  Weight: 85 kg

DRUGS (5)
  1. AERIUS (DESLORATADINE)TABLETS [Suspect]
     Indication: PRURITUS
     Dosage: 1 QD ORAL
     Route: 048
     Dates: start: 20060520, end: 20060607
  2. HYDROCORTISONE TAB [Suspect]
     Indication: ADRENAL INSUFFICIENCY
     Dosage: 50 MG QD ORAL
     Route: 048
     Dates: start: 20050715
  3. VALACYCLOVIR [Suspect]
     Indication: DRUG USE FOR UNKNOWN INDICATION
     Dosage: 500 MG BID ORAL
     Route: 048
     Dates: start: 20051015, end: 20060607
  4. NEORECORMON (EPOETINE BETA) [Suspect]
     Indication: DRUG USE FOR UNKNOWN INDICATION
     Dosage: 30 KU QW SUBCUTANEOUS
     Route: 058
     Dates: start: 20051015
  5. TRIATEC (RAMIPRIL) CAPSULES [Suspect]
     Indication: CARDIAC FAILURE
     Dosage: 2.5 MG QD ORAL
     Route: 048
     Dates: start: 20050715, end: 20060607

REACTIONS (2)
  - APLASIA PURE RED CELL [None]
  - ERYTHEMA INFECTIOSUM [None]
